FAERS Safety Report 5406882-9 (Version None)
Quarter: 2007Q3

REPORT INFORMATION
  Report Type: 
  Country: None (occurrence: None)
  Receive Date: 20070802
  Receipt Date: 20070723
  Transmission Date: 20080115
  Serious: Yes (Other)
  Sender: FDA-Public Use
  Company Number: GXKR2007AT06326

PATIENT
  Age: 18 Year
  Sex: Female

DRUGS (2)
  1. ACETYLSALICYLIC ACID (NGX)(ACETYLSALICYLIC ACID) UNKNOWN, 1000MG [Suspect]
     Dosage: 1000 MG
  2. CAFFEINE(CAFFEINE) [Suspect]
     Dosage: ORAL
     Route: 048

REACTIONS (2)
  - CIRCULATORY COLLAPSE [None]
  - CONVULSION [None]
